FAERS Safety Report 7797956-6 (Version None)
Quarter: 2011Q4

REPORT INFORMATION
  Report Type: 
  Country: None (occurrence: None)
  Receive Date: 20111005
  Receipt Date: 20110930
  Transmission Date: 20120403
  Serious: Yes (Other)
  Sender: FDA-Public Use
  Company Number: CA-GLAXOSMITHKLINE-A0946504A

PATIENT
  Age: 31 Year
  Sex: Male

DRUGS (2)
  1. VENTOLIN HFA [Suspect]
     Indication: RESPIRATORY DISORDER
     Route: 055
     Dates: end: 20080101
  2. ADVAIR DISKUS 100/50 [Suspect]
     Indication: RESPIRATORY DISORDER
     Route: 055
     Dates: end: 20080101

REACTIONS (1)
  - INFERTILITY [None]
